FAERS Safety Report 22632760 (Version 1)
Quarter: 2023Q2

REPORT INFORMATION
  Report Type: Spontaneous
  Country: US (occurrence: US)
  Receive Date: 20230623
  Receipt Date: 20230623
  Transmission Date: 20230722
  Serious: No
  Sender: FDA-Public Use
  Company Number: US-drreddys-SPO/USA/23/0165592

PATIENT
  Age: 20 Year
  Sex: Female

DRUGS (1)
  1. ZENATANE [Suspect]
     Active Substance: ISOTRETINOIN
     Indication: Product used for unknown indication
     Dosage: RMA ISSUE DATE: 17 JANUARY 2023 03:43:07 PM, 20 FEBRUARY 2023 05:24:02 PM, 22 MARCH 2023 04:06:49 PM

REACTIONS (2)
  - Headache [Unknown]
  - Vision blurred [Unknown]
